FAERS Safety Report 22650158 (Version 1)
Quarter: 2023Q2

REPORT INFORMATION
  Report Type: Spontaneous
  Country: US (occurrence: US)
  Receive Date: 20230628
  Receipt Date: 20230628
  Transmission Date: 20230722
  Serious: No
  Sender: FDA-Public Use
  Company Number: US-SEBELA IRELAND LIMITED-2022SEB00059

PATIENT
  Sex: Female

DRUGS (1)
  1. PRAMOSONE [Suspect]
     Active Substance: HYDROCORTISONE ACETATE\PRAMOXINE HYDROCHLORIDE
     Dosage: APPLIED ON HER HAND AND ARM
     Route: 061

REACTIONS (2)
  - Application site pain [Unknown]
  - Unevaluable event [Unknown]
